FAERS Safety Report 7351605-X (Version None)
Quarter: 2011Q1

REPORT INFORMATION
  Report Type: 
  Country: None (occurrence: None)
  Receive Date: 20110315
  Receipt Date: 20110309
  Transmission Date: 20110831
  Serious: No
  Sender: FDA-Public Use
  Company Number: US-ROXANE LABORATORIES, INC.-2011-RO-00290RO

PATIENT
  Sex: Female

DRUGS (3)
  1. METOCLOPRAMIDE HCL [Suspect]
     Dates: start: 20010701, end: 20090501
  2. METOCLOPRAMIDE HCL [Suspect]
     Dates: start: 20010701, end: 20090501
  3. REGLAN [Suspect]
     Dates: start: 20010701, end: 20090501

REACTIONS (5)
  - RESTLESS LEGS SYNDROME [None]
  - TREMOR [None]
  - TARDIVE DYSKINESIA [None]
  - PARKINSON'S DISEASE [None]
  - EXTRAPYRAMIDAL DISORDER [None]
